FAERS Safety Report 11993668 (Version 1)
Quarter: 2016Q1

REPORT INFORMATION
  Report Type: Spontaneous
  Country: JP (occurrence: JP)
  Receive Date: 20160203
  Receipt Date: 20160203
  Transmission Date: 20160526
  Serious: Yes (Death)
  Sender: FDA-Public Use
  Company Number: JP-ELI_LILLY_AND_COMPANY-JP201601000659

PATIENT
  Age: 75 Year
  Sex: Male

DRUGS (2)
  1. GEMZAR [Suspect]
     Active Substance: GEMCITABINE HYDROCHLORIDE
     Indication: PANCREATIC CARCINOMA
     Route: 042
  2. ABRAXANE [Concomitant]
     Active Substance: PACLITAXEL
     Indication: PANCREATIC CARCINOMA
     Route: 042

REACTIONS (4)
  - Skin lesion [Not Recovered/Not Resolved]
  - Skin warm [Not Recovered/Not Resolved]
  - Cellulitis [Not Recovered/Not Resolved]
  - Sepsis [Fatal]
